FAERS Safety Report 25700478 (Version 2)
Quarter: 2025Q3

REPORT INFORMATION
  Report Type: Spontaneous
  Country: US (occurrence: US)
  Receive Date: 20250819
  Receipt Date: 20250922
  Transmission Date: 20251021
  Serious: No
  Sender: PFIZER
  Company Number: US-PFIZER INC-PV202500099053

PATIENT
  Age: 17 Year
  Sex: Male
  Weight: 76.19 kg

DRUGS (1)
  1. BICILLIN L-A [Suspect]
     Active Substance: PENICILLIN G BENZATHINE
     Indication: Exposure to communicable disease
     Dosage: 2.4 MMU, 1X/DAY
     Route: 030
     Dates: start: 20250107, end: 20250107

REACTIONS (1)
  - Recalled product administered [Unknown]

NARRATIVE: CASE EVENT DATE: 20250107
